FAERS Safety Report 8662898 (Version 4)
Quarter: 2012Q4

REPORT INFORMATION
  Report Type: 
  Country: RU (occurrence: RU)
  Receive Date: 20120712
  Receipt Date: 20121126
  Transmission Date: 20130627
  Serious: Yes (Life-Threatening, Hospitalization)
  Sender: FDA-Public Use
  Company Number: RU-SANOFI-AVENTIS-2012SA047346

PATIENT
  Age: 66 Year
  Sex: Female

DRUGS (8)
  1. PLAVIX [Suspect]
     Indication: THROMBOSIS PROPHYLAXIS
     Route: 048
     Dates: start: 201111
  2. PLAVIX [Suspect]
     Indication: ACUTE MYOCARDIAL INFARCTION
     Route: 048
     Dates: start: 201111
  3. ACETYLSALICYLIC ACID/MAGNESIUM [Suspect]
     Indication: THROMBOSIS PROPHYLAXIS
     Route: 048
     Dates: start: 201111, end: 20120703
  4. ACETYLSALICYLIC ACID/MAGNESIUM [Suspect]
     Indication: THROMBOSIS PROPHYLAXIS
     Route: 048
     Dates: start: 20120712, end: 201208
  5. MAGNESIUM HYDROXIDE [Suspect]
     Indication: PREVENTION
     Dates: start: 2012
  6. THROMBO ASS [Suspect]
     Indication: THROMBOSIS PROPHYLAXIS
     Route: 048
     Dates: start: 201208
  7. VITIS VINIFERA [Concomitant]
     Route: 048
     Dates: start: 201209
  8. ASCORUTIN [Concomitant]
     Route: 048
     Dates: start: 201209

REACTIONS (4)
  - Cardiac disorder [Recovered/Resolved]
  - Coronary artery restenosis [Recovered/Resolved]
  - Thrombosis in device [Recovered/Resolved]
  - Contusion [Recovered/Resolved]
